FAERS Safety Report 21566121 (Version 1)
Quarter: 2022Q4

REPORT INFORMATION
  Report Type: Spontaneous
  Country: US (occurrence: None)
  Receive Date: 20221107
  Receipt Date: 20221107
  Transmission Date: 20230113
  Serious: No
  Sender: FDA-Public Use
  Company Number: None

PATIENT
  Sex: Female

DRUGS (27)
  1. SPIRONOLACTONE [Suspect]
     Active Substance: SPIRONOLACTONE
  2. ATORVASTATIN [Suspect]
     Active Substance: ATORVASTATIN
  3. ENTRESTO [Suspect]
     Active Substance: SACUBITRIL\VALSARTAN
  4. CARVEDILOL [Suspect]
     Active Substance: CARVEDILOL
  5. ISOSORBIDE MONONITRATE [Suspect]
     Active Substance: ISOSORBIDE MONONITRATE
  6. FUROSEMIDE [Suspect]
     Active Substance: FUROSEMIDE
  7. CLOPIDOGREL [Suspect]
     Active Substance: CLOPIDOGREL BISULFATE
  8. HYDRALAZINE [Suspect]
     Active Substance: HYDRALAZINE HYDROCHLORIDE
  9. VALSARTAN [Suspect]
     Active Substance: VALSARTAN
  10. FAMOTIDINE [Suspect]
     Active Substance: FAMOTIDINE
  11. PANTOPRAZOLE [Suspect]
     Active Substance: PANTOPRAZOLE
     Indication: Cardiac disorder
     Dosage: FREQUENCY : AT BEDTIME;?
     Route: 048
  12. ASPIRIN [Suspect]
     Active Substance: ASPIRIN
  13. CARVEDILOL [Suspect]
     Active Substance: CARVEDILOL
  14. ISOSORBIDE MONONITRATE [Concomitant]
     Active Substance: ISOSORBIDE MONONITRATE
  15. FUROSEMIDE [Concomitant]
     Active Substance: FUROSEMIDE
  16. ENTRESTO [Suspect]
     Active Substance: SACUBITRIL\VALSARTAN
  17. DOCUSATE SOD [Concomitant]
  18. PANTOPRAZOLE [Concomitant]
     Active Substance: PANTOPRAZOLE
  19. MAGNESIUM [Concomitant]
     Active Substance: MAGNESIUM
  20. CALCIUM\VITAMIN D [Suspect]
     Active Substance: CALCIUM\VITAMIN D
  21. VITAMIN C [Concomitant]
     Active Substance: ASCORBIC ACID
  22. IRON [Concomitant]
     Active Substance: IRON
  23. VITAMIN B12 [Concomitant]
     Active Substance: CYANOCOBALAMIN
  24. ZINC [Concomitant]
     Active Substance: ZINC
  25. HAIRSKIN, NAILS BIOTIN [Concomitant]
  26. PYRIDOXINE HYDROCHLORIDE [Concomitant]
     Active Substance: PYRIDOXINE HYDROCHLORIDE
  27. CORICIDIN [Concomitant]

REACTIONS (13)
  - Swelling [None]
  - Blister [None]
  - Alopecia [None]
  - Rectal haemorrhage [None]
  - Vaginal haemorrhage [None]
  - Dyspnoea [None]
  - Asthenia [None]
  - Thinking abnormal [None]
  - Breast swelling [None]
  - Peripheral swelling [None]
  - Gait disturbance [None]
  - Vision blurred [None]
  - Oedema [None]
